FAERS Safety Report 7814970-2 (Version None)
Quarter: 2011Q4

REPORT INFORMATION
  Report Type: 
  Country: None (occurrence: None)
  Receive Date: 20111014
  Receipt Date: 20111005
  Transmission Date: 20120403
  Serious: Yes (Hospitalization)
  Sender: FDA-Public Use
  Company Number: US-BAXTER-2011BH031401

PATIENT
  Sex: Male

DRUGS (1)
  1. DIANEAL PD-2 W/ DEXTROSE 1.5% [Suspect]
     Indication: PERITONEAL DIALYSIS
     Route: 033
     Dates: end: 20110101

REACTIONS (9)
  - HAEMORRHAGE [None]
  - LIVER DISORDER [None]
  - CLOSTRIDIAL INFECTION [None]
  - MYOCARDIAL INFARCTION [None]
  - ULCER [None]
  - GALLBLADDER DISORDER [None]
  - ADVERSE EVENT [None]
  - INFECTION [None]
  - PULMONARY EMBOLISM [None]
